FAERS Safety Report 7732613-3 (Version None)
Quarter: 2011Q3

REPORT INFORMATION
  Report Type: 
  Country: None (occurrence: None)
  Receive Date: 20110906
  Receipt Date: 20110825
  Transmission Date: 20111222
  Serious: Yes (Hospitalization, Other)
  Sender: FDA-Public Use
  Company Number: US-BAYER-2011-050152

PATIENT
  Age: 20 Year
  Sex: Female
  Weight: 81.633 kg

DRUGS (3)
  1. YAZ [Suspect]
     Indication: ORAL CONTRACEPTION
     Dosage: UNK
     Dates: start: 20081110, end: 20091016
  2. NAPROXEN [Concomitant]
     Dosage: UNK
     Dates: start: 20090826
  3. ALBUTEROL SULFATE AUTOHALER [Concomitant]
     Dosage: UNK
     Dates: start: 20090717

REACTIONS (4)
  - PULMONARY EMBOLISM [None]
  - HEADACHE [None]
  - DEEP VEIN THROMBOSIS [None]
  - THROMBOSIS [None]
